FAERS Safety Report 5471655-8 (Version None)
Quarter: 2007Q3

REPORT INFORMATION
  Report Type: 
  Country: None (occurrence: None)
  Receive Date: 20070928
  Receipt Date: 20070306
  Transmission Date: 20080115
  Serious: Yes (Other)
  Sender: FDA-Public Use
  Company Number: US-BRISTOL-MYERS SQUIBB COMPANY-13703210

PATIENT
  Age: 46 Year
  Sex: Female
  Weight: 91 kg

DRUGS (2)
  1. DEFINITY [Suspect]
     Indication: ECHOCARDIOGRAM
     Dosage: DILUTED
     Route: 042
     Dates: start: 20070305, end: 20070305
  2. HYPERTENSION MEDICATION [Concomitant]

REACTIONS (3)
  - CHEST DISCOMFORT [None]
  - DYSPNOEA [None]
  - HYPERHIDROSIS [None]
